FAERS Safety Report 6377321-9 (Version None)
Quarter: 2009Q3

REPORT INFORMATION
  Report Type: 
  Country: None (occurrence: None)
  Receive Date: 20090923
  Receipt Date: 20090923
  Transmission Date: 20100115
  Serious: Yes (Hospitalization)
  Sender: FDA-Public Use
  Company Number: None

PATIENT
  Age: 55 Year
  Sex: Male
  Weight: 91.8 kg

DRUGS (22)
  1. MYCOPHENOLATE MOFETIL [Suspect]
     Indication: IMMUNOSUPPRESSION
     Dosage: 1500 MG PO Q12
     Route: 048
     Dates: start: 20090401
  2. TACROLIMUS [Concomitant]
  3. PREDNISONE [Concomitant]
  4. ASPIRIN [Concomitant]
  5. VALACYCLOVIR [Concomitant]
  6. SULFAMETHOXAZOLE AND TRIMETHOPRIM [Concomitant]
  7. M.V.I. [Concomitant]
  8. LANSOPRAZOLE [Concomitant]
  9. SERTRALINE HCL [Concomitant]
  10. PRAVASTATIN [Concomitant]
  11. CALC. CARBONATE [Concomitant]
  12. OXYCODONE HCL [Concomitant]
  13. SILDENAFIL CITRATE [Concomitant]
  14. HEPARIN [Concomitant]
  15. HYDRALAZONE [Concomitant]
  16. TORSEMIDE [Concomitant]
  17. VANCOMYCIN [Concomitant]
  18. CEFEPIME [Concomitant]
  19. DOXYCYCLINE [Concomitant]
  20. METRONIDAZOLE [Concomitant]
  21. NYSTATIN [Concomitant]
  22. INSULIN [Concomitant]

REACTIONS (3)
  - CHEST PAIN [None]
  - PANCYTOPENIA [None]
  - PYREXIA [None]
